FAERS Safety Report 10045701 (Version 1)
Quarter: 2014Q1

REPORT INFORMATION
  Report Type: Spontaneous
  Country: US (occurrence: None)
  Receive Date: 20140306
  Receipt Date: 20140306
  Transmission Date: 20141002
  Serious: Yes (Other)
  Sender: FDA-Public Use
  Company Number: 163-21880-13060136

PATIENT
  Age: 81 Year
  Sex: Male
  Weight: 95.3 kg

DRUGS (4)
  1. REVLIMID (LENALIDOMIDE) (15 MILLIGRAM, CAPSULES) [Suspect]
     Indication: PLASMA CELL MYELOMA
     Route: 048
     Dates: start: 200811
  2. HEPARIN (HEPARIN) [Concomitant]
  3. COUMADIN (WARFARIN SODIUM) [Concomitant]
  4. METHADONE/TYNELOL (METHADONE) [Concomitant]

REACTIONS (2)
  - Pulmonary embolism [None]
  - Contusion [None]
